FAERS Safety Report 13096274 (Version 1)
Quarter: 2017Q1

REPORT INFORMATION
  Report Type: Spontaneous
  Country: US (occurrence: US)
  Receive Date: 20170106
  Receipt Date: 20170106
  Transmission Date: 20170428
  Serious: No
  Sender: FDA-Public Use
  Company Number: None

PATIENT
  Age: 60 Year
  Sex: Male

DRUGS (9)
  1. LANTUS [Concomitant]
     Active Substance: INSULIN GLARGINE
  2. NEURONTIN [Concomitant]
     Active Substance: GABAPENTIN
  3. INVOKANA [Concomitant]
     Active Substance: CANAGLIFLOZIN
  4. PEPCID [Concomitant]
     Active Substance: FAMOTIDINE
  5. COREG [Concomitant]
     Active Substance: CARVEDILOL
  6. ADCIRCA [Suspect]
     Active Substance: TADALAFIL
     Indication: PULMONARY ARTERIAL HYPERTENSION
     Route: 048
     Dates: start: 20140315
  7. CLARINEX-D [Concomitant]
     Active Substance: DESLORATADINE\PSEUDOEPHEDRINE SULFATE
  8. RANEXA [Concomitant]
     Active Substance: RANOLAZINE
  9. ASPIR-LOW [Concomitant]
     Active Substance: ASPIRIN

REACTIONS (1)
  - Pleural effusion [None]

NARRATIVE: CASE EVENT DATE: 20161206
